FAERS Safety Report 6179924-3 (Version None)
Quarter: 2009Q2

REPORT INFORMATION
  Report Type: 
  Country: None (occurrence: None)
  Receive Date: 20090505
  Receipt Date: 20090427
  Transmission Date: 20091009
  Serious: Yes (Other)
  Sender: FDA-Public Use
  Company Number: PHHY2009GB16561

PATIENT
  Sex: Male

DRUGS (2)
  1. EXELON [Suspect]
     Indication: PARKINSON'S DISEASE
     Dosage: UNK
     Route: 062
     Dates: start: 20090426, end: 20090427
  2. SINEMET [Concomitant]

REACTIONS (2)
  - AGGRESSION [None]
  - FLANK PAIN [None]
